FAERS Safety Report 8119677-2 (Version None)
Quarter: 2012Q1

REPORT INFORMATION
  Report Type: 
  Country: None (occurrence: None)
  Receive Date: 20120203
  Receipt Date: 20120118
  Transmission Date: 20120608
  Serious: Yes (Other)
  Sender: FDA-Public Use
  Company Number: JPI-P-019112

PATIENT
  Age: 62 Year
  Sex: Male

DRUGS (8)
  1. METHYLPHENIDATE [Concomitant]
  2. TRIAZOLAM [Concomitant]
  3. FISH OIL [Concomitant]
  4. TAMSULOSIN HCL [Concomitant]
  5. XYREM [Suspect]
     Indication: CATAPLEXY
     Dosage: 5 GM (2.5 GM, 2 IN 1 D), ORAL, (TITRATING DOSE), ORAL, 9 GM (4.5 GM, 2 IN 1 D), ORAL
     Route: 048
     Dates: start: 20080114
  6. XYREM [Suspect]
     Indication: CATAPLEXY
     Dosage: 5 GM (2.5 GM, 2 IN 1 D), ORAL, (TITRATING DOSE), ORAL, 9 GM (4.5 GM, 2 IN 1 D), ORAL
     Route: 048
     Dates: start: 20080415
  7. XYREM [Suspect]
     Indication: CATAPLEXY
     Dosage: 5 GM (2.5 GM, 2 IN 1 D), ORAL, (TITRATING DOSE), ORAL, 9 GM (4.5 GM, 2 IN 1 D), ORAL
     Route: 048
     Dates: start: 20080101, end: 20080101
  8. PRAVASTATIN [Concomitant]

REACTIONS (1)
  - MACULAR DEGENERATION [None]
